FAERS Safety Report 5117196-9 (Version None)
Quarter: 2006Q3

REPORT INFORMATION
  Report Type: 
  Country: None (occurrence: None)
  Receive Date: 20060926
  Receipt Date: 20060913
  Transmission Date: 20061208
  Serious: Yes (Other)
  Sender: FDA-Public Use
  Company Number: 2006111879

PATIENT
  Sex: Male

DRUGS (3)
  1. NEURONTIN [Suspect]
  2. PERCOCET (OXYCODONE HDYROCHLORIDE, PARACETAMOL) [Concomitant]
  3. WELLBUTRIN [Concomitant]

REACTIONS (6)
  - ABNORMAL BEHAVIOUR [None]
  - AMNESIA [None]
  - BLOOD PRESSURE ABNORMAL [None]
  - MOOD SWINGS [None]
  - OBSESSIVE THOUGHTS [None]
  - SLEEP DISORDER [None]
